FAERS Safety Report 13261781 (Version 2)
Quarter: 2017Q2

REPORT INFORMATION
  Report Type: Spontaneous
  Country: US (occurrence: CA)
  Receive Date: 20170222
  Receipt Date: 20170407
  Transmission Date: 20170830
  Serious: Yes (Other)
  Sender: FDA-Public Use
  Company Number: US-SUNOVION-2017SUN000771

PATIENT
  Sex: Female
  Weight: 131.5 kg

DRUGS (2)
  1. GLYCOPYRROLATE. [Suspect]
     Active Substance: GLYCOPYRROLATE
     Indication: CHRONIC OBSTRUCTIVE PULMONARY DISEASE
     Dosage: 50 ?G, QD
     Route: 055
     Dates: start: 20161101
  2. GLYCOPYRROLATE. [Suspect]
     Active Substance: GLYCOPYRROLATE
     Dosage: 50 ?G, QD
     Route: 055
     Dates: end: 20170209

REACTIONS (2)
  - Product physical issue [Not Recovered/Not Resolved]
  - Underdose [Unknown]
